FAERS Safety Report 5551993-0 (Version None)
Quarter: 2007Q4

REPORT INFORMATION
  Report Type: 
  Country: None (occurrence: None)
  Receive Date: 20071129
  Receipt Date: 20070510
  Transmission Date: 20080405
  Serious: Yes (Other)
  Sender: FDA-Public Use
  Company Number: US200703002268

PATIENT
  Age: 49 Year
  Sex: Male
  Weight: 88.4 kg

DRUGS (8)
  1. ZYPREXA [Suspect]
     Indication: DEPRESSION
     Dosage: 10 MG, 15 MG
     Dates: start: 19970101, end: 19980101
  2. ZYPREXA [Suspect]
     Indication: DEPRESSION
     Dosage: 10 MG, 15 MG
     Dates: start: 19970101
  3. CELEXA [Concomitant]
  4. NEFAZODONE HCL [Concomitant]
  5. LISINOPRIL [Concomitant]
  6. DIVALPROEX (VALPROATE SEMISODIUM) [Concomitant]
  7. TRAZODONE HCL [Concomitant]
  8. AMITRIPTYLINE HCL [Concomitant]

REACTIONS (7)
  - BLOOD CHOLESTEROL INCREASED [None]
  - BLOOD PRESSURE INCREASED [None]
  - BLOOD TRIGLYCERIDES INCREASED [None]
  - DIABETIC KETOACIDOSIS [None]
  - DIABETIC NEUROPATHY [None]
  - HYPERGLYCAEMIA [None]
  - TYPE 2 DIABETES MELLITUS [None]
